FAERS Safety Report 4964623-3 (Version None)
Quarter: 2006Q2

REPORT INFORMATION
  Report Type: 
  Country: None (occurrence: None)
  Receive Date: 20060406
  Receipt Date: 20051123
  Transmission Date: 20061013
  Serious: Yes (Hospitalization, Disabling)
  Sender: FDA-Public Use
  Company Number: US-MERCK-0511USA04056

PATIENT
  Age: 68 Year
  Sex: Female
  Weight: 81 kg

DRUGS (7)
  1. VIOXX [Suspect]
     Indication: ARTHRALGIA
     Route: 048
     Dates: start: 20000901, end: 20040901
  2. ACTIVELLA [Concomitant]
     Route: 065
  3. PRILOSEC [Concomitant]
     Route: 065
  4. LEXAPRO [Concomitant]
     Route: 065
  5. ZYRTEC [Concomitant]
     Route: 065
  6. LIPITOR [Concomitant]
     Route: 065
  7. NASONEX [Concomitant]
     Route: 065

REACTIONS (1)
  - MYOCARDIAL INFARCTION [None]
